FAERS Safety Report 7109205-2 (Version None)
Quarter: 2010Q4

REPORT INFORMATION
  Report Type: 
  Country: None (occurrence: None)
  Receive Date: 20101117
  Receipt Date: 20101110
  Transmission Date: 20110411
  Serious: Yes (Disabling)
  Sender: FDA-Public Use
  Company Number: JP-ABBOTT-07P-087-0425764-00

PATIENT
  Age: 76 Year
  Sex: Male

DRUGS (6)
  1. LEUPROLIDE ACETATE [Suspect]
     Indication: PROSTATE CANCER STAGE IV
     Route: 058
     Dates: start: 20060824
  2. CASODEX [Concomitant]
     Indication: PROSTATE CANCER STAGE IV
     Route: 048
     Dates: start: 20060720
  3. GASTER D [Concomitant]
     Indication: GASTRITIS
     Route: 048
  4. PREDNISOLONE [Concomitant]
     Indication: ECZEMA
     Route: 048
  5. CHLORPHENIRAMINE MALEATE [Concomitant]
     Indication: ECZEMA
     Route: 048
  6. OLOPATADINE HYDROCHLORIDE [Concomitant]
     Indication: ECZEMA
     Route: 048

REACTIONS (1)
  - SPINAL COMPRESSION FRACTURE [None]
